FAERS Safety Report 10281874 (Version 2)
Quarter: 2014Q3

REPORT INFORMATION
  Report Type: Spontaneous
  Country: BR (occurrence: BR)
  Receive Date: 20140707
  Receipt Date: 20140707
  Transmission Date: 20150326
  Serious: Yes (Other)
  Sender: FDA-Public Use
  Company Number: BR-SA-2013SA111918

PATIENT
  Age: 31 Year
  Sex: Female
  Weight: 50 kg

DRUGS (7)
  1. CLEXANE [Suspect]
     Active Substance: ENOXAPARIN SODIUM
     Indication: PROPHYLAXIS
     Dosage: ORUTE: AT THE BACK OF THE ARM
     Route: 058
     Dates: start: 20131029, end: 201405
  2. FOLIC ACID. [Concomitant]
     Active Substance: FOLIC ACID
     Indication: VITAMIN SUPPLEMENTATION
     Route: 048
     Dates: start: 201301
  3. OS-CAL [Concomitant]
     Indication: VITAMIN SUPPLEMENTATION
     Route: 048
     Dates: start: 20131025
  4. FOLIC ACID. [Concomitant]
     Active Substance: FOLIC ACID
     Indication: CONGENITAL ANOMALY
     Route: 048
     Dates: start: 201301
  5. UTROGESTAN [Concomitant]
     Active Substance: PROGESTERONE
     Indication: PROGESTERONE
     Route: 048
     Dates: start: 201308
  6. UTROGESTAN [Concomitant]
     Active Substance: PROGESTERONE
     Indication: PLACENTAL NECROSIS
     Route: 048
     Dates: start: 201308
  7. AAS [Concomitant]
     Active Substance: ASPIRIN
     Indication: BLOOD PRESSURE
     Route: 048
     Dates: start: 20131023

REACTIONS (3)
  - Exposure during pregnancy [Unknown]
  - Abdominal pain lower [Recovered/Resolved]
  - Premature delivery [Unknown]

NARRATIVE: CASE EVENT DATE: 20140322
